FAERS Safety Report 9029497 (Version 3)
Quarter: 2013Q2

REPORT INFORMATION
  Report Type: Spontaneous
  Country: JP (occurrence: JP)
  Receive Date: 20130125
  Receipt Date: 20130415
  Transmission Date: 20140414
  Serious: Yes (Hospitalization, Disabling, Other)
  Sender: FDA-Public Use
  Company Number: JP-AMGEN-JPNSP2012078772

PATIENT
  Sex: Female
  Weight: 52.4 kg

DRUGS (14)
  1. ENBREL [Suspect]
     Indication: RHEUMATOID ARTHRITIS
     Dosage: 25 MG, 2X/WEEK
     Route: 058
     Dates: start: 200710, end: 200910
  2. ENBREL [Suspect]
     Dosage: 25 MG, WEEKLY
     Route: 058
     Dates: start: 200910, end: 20120828
  3. PREDONINE /00016201/ [Suspect]
     Indication: INTERSTITIAL LUNG DISEASE
     Dosage: 10 MG, 1X/DAY
     Route: 048
     Dates: start: 201109, end: 201204
  4. PREDONINE /00016201/ [Suspect]
     Indication: RHEUMATOID ARTHRITIS
     Dosage: 7.5 MG, 1X/DAY
     Route: 048
     Dates: start: 201204
  5. CELECOX [Concomitant]
     Indication: RHEUMATOID ARTHRITIS
     Dosage: 100 MG, 1X/DAY
     Route: 048
  6. AMARYL [Concomitant]
     Indication: DIABETES MELLITUS
     Dosage: 1 MG, 1X/DAY
     Route: 048
  7. JANUVIA [Concomitant]
     Indication: DIABETES MELLITUS
     Dosage: 50 MG, 1X/DAY
     Route: 048
  8. LIPITOR [Concomitant]
     Indication: DYSLIPIDAEMIA
     Dosage: 5 MG, 1X/DAY
     Route: 048
  9. CORINAEL [Concomitant]
     Indication: HYPERTENSION
     Dosage: 20 MG, 1X/DAY
     Route: 048
  10. CISDYNE [Concomitant]
     Indication: INTERSTITIAL LUNG DISEASE
     Dosage: 250 MG, 2X/DAY
     Route: 048
  11. ASTHPHYLLIN                        /00231301/ [Concomitant]
     Indication: INTERSTITIAL LUNG DISEASE
     Dosage: 1 DF, 2X/DAY
     Route: 048
  12. CODEINE PHOSPHATE [Concomitant]
     Indication: INTERSTITIAL LUNG DISEASE
     Dosage: 1 G, 2X/DAY
     Route: 048
  13. CODEINE PHOSPHATE [Concomitant]
     Indication: INTERSTITIAL LUNG DISEASE
  14. GASTER D [Concomitant]
     Indication: GASTRITIS PROPHYLAXIS
     Dosage: 20 MG, 2X/DAY
     Route: 048

REACTIONS (5)
  - Diabetes mellitus [Unknown]
  - Osteoarthritis [Unknown]
  - Arthritis bacterial [Recovered/Resolved with Sequelae]
  - Abscess limb [Recovered/Resolved with Sequelae]
  - Interstitial lung disease [Unknown]
